FAERS Safety Report 23064968 (Version 2)
Quarter: 2023Q4

REPORT INFORMATION
  Report Type: Spontaneous
  Country: SK (occurrence: CZ)
  Receive Date: 20231013
  Receipt Date: 20231101
  Transmission Date: 20240109
  Serious: Yes (Other)
  Sender: FDA-Public Use
  Company Number: SK-TEVA-2023-SK-2930211

PATIENT
  Age: 20 Year
  Sex: Female

DRUGS (10)
  1. LACOSAMIDE [Suspect]
     Active Substance: LACOSAMIDE
     Indication: Partial seizures
     Dosage: UNK
     Route: 065
  2. LEVETIRACETAM [Suspect]
     Active Substance: LEVETIRACETAM
     Indication: Partial seizures
     Dosage: UNK
     Route: 065
  3. CENOBAMATE [Interacting]
     Active Substance: CENOBAMATE
     Indication: Mixed anxiety and depressive disorder
     Dosage: 100 MILLIGRAM, QD
     Route: 065
  4. CENOBAMATE [Interacting]
     Active Substance: CENOBAMATE
     Indication: Partial seizures
     Dosage: UNK
     Route: 065
     Dates: start: 202208
  5. CENOBAMATE [Interacting]
     Active Substance: CENOBAMATE
     Dosage: 150 MILLIGRAM, QD
     Route: 065
  6. CENOBAMATE [Interacting]
     Active Substance: CENOBAMATE
     Dosage: 200 MILLIGRAM, QD
     Route: 065
  7. LAMOTRIGINE [Interacting]
     Active Substance: LAMOTRIGINE
     Indication: Partial seizures
     Dosage: 400 MILLIGRAM, QD
     Route: 065
  8. ESCITALOPRAM [Concomitant]
     Active Substance: ESCITALOPRAM OXALATE
     Indication: Mixed anxiety and depressive disorder
     Dosage: UNK
     Route: 065
  9. ZONISAMIDE [Concomitant]
     Active Substance: ZONISAMIDE
     Indication: Partial seizures
     Dosage: UNK
     Route: 065
  10. CARBAMAZEPINE [Concomitant]
     Active Substance: CARBAMAZEPINE
     Indication: Partial seizures
     Dosage: UNK
     Route: 065

REACTIONS (6)
  - Depression suicidal [Unknown]
  - Seizure [Recovered/Resolved]
  - Condition aggravated [Unknown]
  - Drug interaction [Unknown]
  - Drug level decreased [Unknown]
  - Therapy partial responder [Unknown]
